FAERS Safety Report 9565321 (Version 2)
Quarter: 2014Q1

REPORT INFORMATION
  Report Type: Spontaneous
  Country: US (occurrence: US)
  Receive Date: 20130930
  Receipt Date: 20140131
  Transmission Date: 20141002
  Serious: Yes (Other)
  Sender: FDA-Public Use
  Company Number: US-PFIZER INC-2013276730

PATIENT
  Age: 74 Year
  Sex: Female
  Weight: 100 kg

DRUGS (3)
  1. FLECTOR [Suspect]
     Indication: BACK DISORDER
     Dosage: UNK,1X/DAY
     Route: 062
     Dates: start: 2008
  2. FLECTOR [Suspect]
     Indication: BACK PAIN
     Dosage: UNK, AS NEEDED
     Route: 062
     Dates: end: 201305
  3. FLECTOR [Suspect]
     Indication: GAIT DISTURBANCE

REACTIONS (3)
  - Limb discomfort [Unknown]
  - Weight decreased [Unknown]
  - Muscle spasms [Not Recovered/Not Resolved]
